FAERS Safety Report 12615175 (Version 1)
Quarter: 2016Q3

REPORT INFORMATION
  Report Type: Spontaneous
  Country: GB (occurrence: GB)
  Receive Date: 20160802
  Receipt Date: 20160802
  Transmission Date: 20161109
  Serious: Yes (Disabling)
  Sender: FDA-Public Use
  Company Number: GB-JNJFOC-20160725155

PATIENT
  Age: 60 Year
  Sex: Male

DRUGS (6)
  1. GABAPENTIN. [Concomitant]
     Active Substance: GABAPENTIN
     Route: 065
  2. BISOPROLOL [Concomitant]
     Active Substance: BISOPROLOL
     Route: 065
  3. XARELTO [Suspect]
     Active Substance: RIVAROXABAN
     Indication: EMBOLISM VENOUS
     Route: 048
     Dates: start: 20160227, end: 20160601
  4. XARELTO [Suspect]
     Active Substance: RIVAROXABAN
     Indication: PULMONARY EMBOLISM
     Route: 048
     Dates: start: 20160227, end: 20160601
  5. ATORVASTATIN [Concomitant]
     Active Substance: ATORVASTATIN
     Route: 065
  6. NALOXONE HCL W/OXYCODONE HCL [Concomitant]
     Route: 065

REACTIONS (6)
  - Allodynia [Recovered/Resolved]
  - Temperature difference of extremities [Unknown]
  - Neuralgia [Recovered/Resolved]
  - Skin discolouration [Recovered/Resolved]
  - Hypoaesthesia [Unknown]
  - Nerve root compression [Unknown]

NARRATIVE: CASE EVENT DATE: 20160228
